FAERS Safety Report 5043931-4 (Version None)
Quarter: 2006Q2

REPORT INFORMATION
  Report Type: 
  Country: None (occurrence: None)
  Receive Date: 20060629
  Receipt Date: 20060623
  Transmission Date: 20061013
  Serious: Yes (Hospitalization)
  Sender: FDA-Public Use
  Company Number: 14276

PATIENT
  Age: 53 Year
  Sex: Male

DRUGS (5)
  1. FLUOROURACIL [Suspect]
     Dosage: 900 MG ONCE IV
     Route: 042
     Dates: start: 20060328, end: 20060328
  2. FLUOROURACIL [Suspect]
     Dosage: 5400 MG OTH IV
     Route: 042
     Dates: start: 20060328, end: 20060330
  3. LEUCOVORIN CALCIUM [Suspect]
     Dosage: 900 MG FREQ
     Dates: start: 20060328, end: 20060328
  4. OXALIPLATIN [Suspect]
     Dosage: 190 MG FREQ
     Dates: start: 20060328, end: 20060328
  5. KYTRIL [Concomitant]

REACTIONS (3)
  - COORDINATION ABNORMAL [None]
  - HYPOAESTHESIA [None]
  - MOTOR DYSFUNCTION [None]
